FAERS Safety Report 22126674 (Version 1)
Quarter: 2023Q1

REPORT INFORMATION
  Report Type: Spontaneous
  Country: CN (occurrence: CN)
  Receive Date: 20230322
  Receipt Date: 20230322
  Transmission Date: 20230417
  Serious: Yes (Other)
  Sender: FDA-Public Use
  Company Number: CN-PFIZER INC-PV202300052050

PATIENT
  Age: 76 Year
  Sex: Female
  Weight: 46 kg

DRUGS (3)
  1. NIRMATRELVIR\RITONAVIR [Suspect]
     Active Substance: NIRMATRELVIR\RITONAVIR
     Indication: Antiviral treatment
     Dosage: 1 DF, 2X/DAY
     Route: 048
     Dates: start: 20230201, end: 20230202
  2. BUDESONIDE [Concomitant]
     Active Substance: BUDESONIDE
     Indication: Asthma
     Dosage: 1 MG, 2X/DAY
     Dates: start: 20230201, end: 20230210
  3. COMPOUND DEXTROMETHORPHAN HYDROBROMIDE [DEXTROMETHORPHAN HYDROBROMIDE; [Concomitant]
     Indication: Cough
     Dosage: 10 ML, 3X/DAY
     Route: 048
     Dates: start: 20230201, end: 20230202

REACTIONS (4)
  - Hallucination, visual [Recovering/Resolving]
  - Psychomotor hyperactivity [Recovering/Resolving]
  - Logorrhoea [Recovering/Resolving]
  - Agitation [Recovering/Resolving]

NARRATIVE: CASE EVENT DATE: 20230202
